FAERS Safety Report 8259568-X (Version None)
Quarter: 2012Q2

REPORT INFORMATION
  Report Type: 
  Country: None (occurrence: None)
  Receive Date: 20120404
  Receipt Date: 20120402
  Transmission Date: 20120825
  Serious: Yes (Hospitalization, Other)
  Sender: FDA-Public Use
  Company Number: PHEH2012US006725

PATIENT
  Sex: Male

DRUGS (8)
  1. LOPID [Concomitant]
  2. DILTIAZEM HCL [Concomitant]
  3. METOPROLOL TARTRATE [Concomitant]
  4. INDAPAMIDE [Concomitant]
  5. GILENYA [Suspect]
     Dosage: 0.5 MG, QD
     Route: 048
     Dates: start: 20110101
  6. PLAVIX [Concomitant]
  7. LIPITOR [Concomitant]
     Indication: BLOOD CHOLESTEROL INCREASED
  8. ASPIRIN [Concomitant]
     Dosage: 325 MG, QD

REACTIONS (2)
  - CHEST PAIN [None]
  - MYOCARDIAL INFARCTION [None]
